FAERS Safety Report 4874417-5 (Version None)
Quarter: 2005Q4

REPORT INFORMATION
  Report Type: 
  Country: None (occurrence: None)
  Receive Date: 20051201
  Receipt Date: 20050810
  Transmission Date: 20060501
  Serious: No
  Sender: FDA-Public Use
  Company Number: 2005PV001049

PATIENT
  Age: 55 Year
  Sex: Female
  Weight: 114.3065 kg

DRUGS (13)
  1. BYETTA [Suspect]
     Indication: DIABETES MELLITUS NON-INSULIN-DEPENDENT
     Dosage: 5 MCG;BID;SC
     Route: 058
     Dates: start: 20050810
  2. AMARYL [Concomitant]
  3. METFORMIN HYDROCHLORIDE [Concomitant]
  4. ACTOS [Concomitant]
  5. NOVOLOG MIX 70/30 [Concomitant]
  6. SYNTHROID [Concomitant]
  7. METAZOLONE [Concomitant]
  8. POTASSIUM [Concomitant]
  9. NEURONTIN [Concomitant]
  10. FUROSEMIDE [Concomitant]
  11. ATENOLOL [Concomitant]
  12. PRILOSEC OTC [Concomitant]
  13. METANX [Concomitant]

REACTIONS (3)
  - ERUCTATION [None]
  - HEADACHE [None]
  - NAUSEA [None]
